FAERS Safety Report 5460429-X (Version None)
Quarter: 2007Q3

REPORT INFORMATION
  Report Type: 
  Country: None (occurrence: None)
  Receive Date: 20070919
  Receipt Date: 20070802
  Transmission Date: 20080115
  Serious: Yes (Other)
  Sender: FDA-Public Use
  Company Number: US-ASTRAZENECA-2007UW15775

PATIENT
  Age: 18262 Day
  Sex: Female
  Weight: 78.2 kg

DRUGS (4)
  1. SEROQUEL [Suspect]
     Indication: SLEEP DISORDER
     Dosage: 600-800 MG
     Route: 048
     Dates: start: 19970101, end: 20060501
  2. SEROQUEL [Suspect]
     Indication: BIPOLAR DISORDER
     Dosage: 600-800 MG
     Route: 048
     Dates: start: 19970101, end: 20060501
  3. SEROQUEL [Suspect]
     Indication: SCHIZOPHRENIA
     Dosage: 600-800 MG
     Route: 048
     Dates: start: 19970101, end: 20060501
  4. HALDOL [Concomitant]

REACTIONS (2)
  - DIABETIC COMA [None]
  - PANCREATITIS ACUTE [None]
